FAERS Safety Report 5099017-6 (Version None)
Quarter: 2006Q3

REPORT INFORMATION
  Report Type: 
  Country: None (occurrence: None)
  Receive Date: 20060731
  Receipt Date: 20051206
  Transmission Date: 20061208
  Serious: Yes (Other)
  Sender: FDA-Public Use
  Company Number: 220001

PATIENT
  Age: 42 Year
  Sex: Female
  Weight: 82.1 kg

DRUGS (8)
  1. RITUXAN [Suspect]
     Indication: RHEUMATOID ARTHRITIS
     Dosage: 375 MG/M2, 1/WEEK, SUBCUTANEOUS
     Route: 058
     Dates: start: 20051117
  2. VIAGMOX (MOXIFLOXACIN HYDROCHLORIDE) [Concomitant]
  3. PREDNISONE TAB [Concomitant]
  4. METHTOREXATE (METHOTREXATE) [Concomitant]
  5. FOLIC ACID [Concomitant]
  6. FOSAMAX [Concomitant]
  7. PLAQUENIL [Concomitant]
  8. LEXAPRO (ESCITALOPRAM OXALATE) [Concomitant]

REACTIONS (1)
  - RASH MACULO-PAPULAR [None]
